FAERS Safety Report 8524129-1 (Version None)
Quarter: 2012Q3

REPORT INFORMATION
  Report Type: 
  Country: None (occurrence: None)
  Receive Date: 20120720
  Receipt Date: 20120711
  Transmission Date: 20120928
  Serious: Yes (Other)
  Sender: FDA-Public Use
  Company Number: NL-JNJFOC-20120311829

PATIENT
  Sex: Male

DRUGS (1)
  1. PALIPERIDONE [Suspect]
     Indication: PSYCHOTIC DISORDER
     Route: 030
     Dates: start: 20110718, end: 20120330

REACTIONS (6)
  - DEPRESSION [None]
  - MAJOR DEPRESSION [None]
  - POOR QUALITY SLEEP [None]
  - DECREASED APPETITE [None]
  - MORBID THOUGHTS [None]
  - SEXUAL DYSFUNCTION [None]
